FAERS Safety Report 16213328 (Version 1)
Quarter: 2019Q2

REPORT INFORMATION
  Report Type: Spontaneous
  Country: IN (occurrence: IN)
  Receive Date: 20190418
  Receipt Date: 20190418
  Transmission Date: 20190711
  Serious: Yes (Hospitalization)
  Sender: FDA-Public Use
  Company Number: IN-FRESENIUS KABI-FK201904273

PATIENT
  Age: 43 Year
  Sex: Female

DRUGS (1)
  1. PROPOFOL (MANUFACTURER UNKNOWN) [Suspect]
     Active Substance: PROPOFOL
     Indication: SEDATIVE THERAPY
     Route: 065

REACTIONS (1)
  - Unmasking of previously unidentified disease [Recovered/Resolved]
